FAERS Safety Report 9383268 (Version 2)
Quarter: 2014Q2

REPORT INFORMATION
  Report Type: Spontaneous
  Country: US (occurrence: US)
  Receive Date: 20130704
  Receipt Date: 20140410
  Transmission Date: 20141212
  Serious: No
  Sender: FDA-Public Use
  Company Number: US-BIOGENIDEC-2013BI059409

PATIENT
  Sex: Female

DRUGS (1)
  1. AVONEX [Suspect]
     Indication: MULTIPLE SCLEROSIS
     Route: 030
     Dates: start: 20020515

REACTIONS (10)
  - Back disorder [Not Recovered/Not Resolved]
  - Panic attack [Recovered/Resolved with Sequelae]
  - Fear [Unknown]
  - Back pain [Recovered/Resolved]
  - Musculoskeletal disorder [Recovered/Resolved]
  - Nervousness [Recovered/Resolved]
  - Multiple sclerosis relapse [Recovered/Resolved]
  - Nausea [Unknown]
  - Depression [Not Recovered/Not Resolved]
  - Anxiety [Unknown]
